FAERS Safety Report 15332130 (Version 1)
Quarter: 2018Q3

REPORT INFORMATION
  Report Type: Spontaneous
  Country: FR (occurrence: FR)
  Receive Date: 20180829
  Receipt Date: 20180829
  Transmission Date: 20181010
  Serious: Yes (Death, Hospitalization)
  Sender: FDA-Public Use
  Company Number: PHHY2018FR081701

PATIENT
  Age: 86 Year
  Sex: Female

DRUGS (4)
  1. VANCOMYCIN [Suspect]
     Active Substance: VANCOMYCIN
     Indication: MEDICAL DEVICE SITE JOINT INFECTION
     Dosage: UNK
     Route: 042
  2. AMIKACINE [Suspect]
     Active Substance: AMIKACIN
     Indication: MEDICAL DEVICE SITE JOINT INFECTION
     Dosage: UNK
     Route: 042
  3. CEFEPIME [Suspect]
     Active Substance: CEFEPIME HYDROCHLORIDE
     Indication: MEDICAL DEVICE SITE JOINT INFECTION
     Dosage: UNK
     Route: 042
  4. FORTUM [Suspect]
     Active Substance: CEFTAZIDIME
     Indication: MEDICAL DEVICE SITE JOINT INFECTION
     Dosage: UNK
     Route: 042

REACTIONS (1)
  - Acute kidney injury [Fatal]

NARRATIVE: CASE EVENT DATE: 20160531
